FAERS Safety Report 16160593 (Version 1)
Quarter: 2019Q2

REPORT INFORMATION
  Report Type: Spontaneous
  Country: US (occurrence: US)
  Receive Date: 20190405
  Receipt Date: 20190405
  Transmission Date: 20190711
  Serious: No
  Sender: FDA-Public Use
  Company Number: US-DSJP-DSU-2019-108330

PATIENT

DRUGS (9)
  1. MORPHABOND ER [Suspect]
     Active Substance: MORPHINE SULFATE
     Dosage: 15 MG, BID
     Route: 048
     Dates: start: 201901, end: 201902
  2. ASPIRIN                            /00002701/ [Concomitant]
     Active Substance: ASPIRIN
     Indication: CARDIAC PACEMAKER INSERTION
     Dosage: UNK
     Route: 048
  3. MORPHABOND ER [Suspect]
     Active Substance: MORPHINE SULFATE
     Indication: SCLERODERMA
     Dosage: 30 DF, BID
     Route: 048
     Dates: start: 201812, end: 201901
  4. HYDROCODONE [Concomitant]
     Active Substance: HYDROCODONE
     Indication: SCLERODERMA
     Dosage: UNK
     Route: 048
  5. LYRICA [Concomitant]
     Active Substance: PREGABALIN
     Indication: SCLERODERMA
     Dosage: UNK
     Route: 048
  6. MORPHINE [Concomitant]
     Active Substance: MORPHINE
     Indication: SCLERODERMA
     Dosage: UNK
     Route: 048
  7. MORPHABOND ER [Suspect]
     Active Substance: MORPHINE SULFATE
     Dosage: 15 MG, QOD
     Route: 048
     Dates: start: 201902, end: 201902
  8. PROTONIX                           /00661201/ [Concomitant]
     Active Substance: OMEPRAZOLE
     Indication: GASTROOESOPHAGEAL REFLUX DISEASE
     Dosage: UNK
     Route: 048
  9. CELEBREX [Concomitant]
     Active Substance: CELECOXIB
     Indication: ARTHRITIS
     Dosage: UNK
     Route: 048

REACTIONS (2)
  - Off label use [Not Recovered/Not Resolved]
  - Hot flush [Unknown]

NARRATIVE: CASE EVENT DATE: 201812
